FAERS Safety Report 10453449 (Version 2)
Quarter: 2014Q3

REPORT INFORMATION
  Report Type: Other
  Country: IT (occurrence: IT)
  Receive Date: 20140915
  Receipt Date: 20140915
  Transmission Date: 20150326
  Serious: Yes (Hospitalization)
  Sender: FDA-Public Use
  Company Number: IT-MYLAN-2014S1014740

PATIENT

DRUGS (1)
  1. METFORMIN [Suspect]
     Active Substance: METFORMIN HYDROCHLORIDE
     Indication: DIABETES MELLITUS
     Dosage: 3000 MG,QD
     Route: 048
     Dates: start: 20100601, end: 20140525

REACTIONS (2)
  - Renal failure acute [Not Recovered/Not Resolved]
  - Lactic acidosis [Not Recovered/Not Resolved]

NARRATIVE: CASE EVENT DATE: 20140525
